FAERS Safety Report 13246395 (Version 4)
Quarter: 2017Q1

REPORT INFORMATION
  Report Type: Spontaneous
  Country: US (occurrence: US)
  Receive Date: 20170217
  Receipt Date: 20170329
  Transmission Date: 20170428
  Serious: Yes (Hospitalization, Other)
  Sender: FDA-Public Use
  Company Number: US-JNJFOC-20170214262

PATIENT
  Age: 46 Year
  Sex: Male
  Weight: 97.52 kg

DRUGS (7)
  1. VALPROIC ACID. [Concomitant]
     Active Substance: VALPROIC ACID
     Indication: SEDATIVE THERAPY
     Dosage: 2 TEASPOONS, TWICE A DAY AND 1 TEASPOON AT BED TIME
     Route: 048
     Dates: start: 1999
  2. RISPERDAL [Suspect]
     Active Substance: RISPERIDONE
     Indication: BRAIN INJURY
     Dosage: 2 MG IN THE MORNING AND 3 MG AT NIGHT
     Route: 048
     Dates: start: 1992
  3. AMANTADINE [Concomitant]
     Active Substance: AMANTADINE
     Indication: TREMOR
     Route: 048
     Dates: start: 1992
  4. LEXAPRO [Concomitant]
     Active Substance: ESCITALOPRAM OXALATE
     Indication: SEDATIVE THERAPY
     Route: 048
     Dates: start: 1992
  5. PATRIOT RISPERIDONE [Suspect]
     Active Substance: RISPERIDONE
     Indication: SEDATIVE THERAPY
     Dosage: 2 MG IN THE MORNING AND 3 MG IN THE EVENING
     Route: 048
     Dates: start: 1999
  6. RAPAFLO [Concomitant]
     Active Substance: SILODOSIN
     Route: 048
     Dates: start: 1992
  7. IBUPROFEN. [Concomitant]
     Active Substance: IBUPROFEN
     Route: 048
     Dates: start: 1992

REACTIONS (17)
  - Aggression [Unknown]
  - Anal incontinence [Recovered/Resolved]
  - Drug dose omission [Unknown]
  - Contusion [Unknown]
  - Pollakiuria [Unknown]
  - Anger [Unknown]
  - Fall [Unknown]
  - Product packaging issue [Unknown]
  - Hypoacusis [Not Recovered/Not Resolved]
  - Hospitalisation [Recovered/Resolved]
  - Seizure [Recovered/Resolved]
  - Adverse event [Not Recovered/Not Resolved]
  - Upper limb fracture [Unknown]
  - Rib fracture [Recovered/Resolved]
  - Hand fracture [Unknown]
  - Weight increased [Not Recovered/Not Resolved]
  - Product use issue [Unknown]

NARRATIVE: CASE EVENT DATE: 1999
